FAERS Safety Report 8690845 (Version 2)
Quarter: 2013Q4

REPORT INFORMATION
  Report Type: Spontaneous
  Country: US (occurrence: US)
  Receive Date: 20120729
  Receipt Date: 20131107
  Transmission Date: 20140711
  Serious: Yes (Hospitalization)
  Sender: FDA-Public Use
  Company Number: US-009507513-1207USA009802

PATIENT
  Age: 79 Year
  Sex: Male

DRUGS (1)
  1. ZOCOR [Suspect]
     Dosage: 80 MG, HS
     Route: 048

REACTIONS (5)
  - Renal failure acute [Unknown]
  - Rhabdomyolysis [Unknown]
  - Asthenia [Unknown]
  - Myalgia [Unknown]
  - Hepatic enzyme increased [Unknown]
